FAERS Safety Report 8343529-6 (Version None)
Quarter: 2012Q2

REPORT INFORMATION
  Report Type: 
  Country: None (occurrence: None)
  Receive Date: 20120503
  Receipt Date: 20120503
  Transmission Date: 20120825
  Serious: Yes (Hospitalization)
  Sender: FDA-Public Use
  Company Number: None

PATIENT
  Sex: Female
  Weight: 46 kg

DRUGS (2)
  1. TAXOL [Suspect]
     Dosage: 217.5 MG
  2. CARBOPLATIN [Suspect]
     Dosage: 402 MG

REACTIONS (4)
  - THROMBOCYTOPENIA [None]
  - FAILURE TO THRIVE [None]
  - DEPRESSION [None]
  - CONDITION AGGRAVATED [None]
